FAERS Safety Report 19840238 (Version 1)
Quarter: 2021Q3

REPORT INFORMATION
  Report Type: Spontaneous
  Country: US (occurrence: US)
  Receive Date: 20210914
  Receipt Date: 20210914
  Transmission Date: 20211014
  Serious: No
  Sender: FDA-Public Use
  Company Number: None

PATIENT
  Age: 49 Year
  Sex: Female

DRUGS (3)
  1. VERZENIO [Suspect]
     Active Substance: ABEMACICLIB
     Indication: BONE CANCER
     Dosage: OTHER DOSE:1 TABLET;?01?JUN?2021
     Route: 048
     Dates: start: 202104
  2. VERZENIO [Suspect]
     Active Substance: ABEMACICLIB
     Indication: BREAST CANCER
     Dosage: OTHER DOSE:1 TABLET;?01?JUN?2021
     Route: 048
     Dates: start: 202104
  3. VERZENIO [Suspect]
     Active Substance: ABEMACICLIB
     Indication: BREAST CANCER FEMALE
     Dosage: OTHER DOSE:1 TABLET;?01?JUN?2021
     Route: 048
     Dates: start: 202104

REACTIONS (3)
  - Diarrhoea [None]
  - Ageusia [None]
  - Decreased appetite [None]

NARRATIVE: CASE EVENT DATE: 202106
